FAERS Safety Report 18324309 (Version 1)
Quarter: 2020Q3

REPORT INFORMATION
  Report Type: Spontaneous
  Country: DE (occurrence: DE)
  Receive Date: 20200929
  Receipt Date: 20200929
  Transmission Date: 20201103
  Serious: Yes (Other)
  Sender: FDA-Public Use
  Company Number: DE-ASTRAZENECA-2020SF23394

PATIENT
  Sex: Male

DRUGS (1)
  1. SYMBICORT [Suspect]
     Active Substance: BUDESONIDE\FORMOTEROL FUMARATE DIHYDRATE
     Dosage: 160/4.5 UG WITH UNKNOWN FREQUENCY UNKNOWN
     Route: 055

REACTIONS (4)
  - Dyspnoea [Unknown]
  - Asthma [Unknown]
  - Drug ineffective [Unknown]
  - Device malfunction [Unknown]
